FAERS Safety Report 6198228-6 (Version None)
Quarter: 2009Q2

REPORT INFORMATION
  Report Type: 
  Country: None (occurrence: None)
  Receive Date: 20090521
  Receipt Date: 20090514
  Transmission Date: 20091009
  Serious: Yes (Life-Threatening)
  Sender: FDA-Public Use
  Company Number: UA-GENENTECH-281271

PATIENT
  Age: 50 Year
  Sex: Male

DRUGS (1)
  1. ACTIVASE [Suspect]
     Indication: DEEP VEIN THROMBOSIS
     Dosage: UNK
     Route: 042
     Dates: start: 20090330

REACTIONS (1)
  - ISCHAEMIC STROKE [None]
